FAERS Safety Report 20356803 (Version 1)
Quarter: 2022Q1

REPORT INFORMATION
  Report Type: Spontaneous
  Country: CA (occurrence: CA)
  Receive Date: 20220120
  Receipt Date: 20220120
  Transmission Date: 20220423
  Serious: Yes (Other)
  Sender: FDA-Public Use
  Company Number: None

PATIENT
  Sex: Female

DRUGS (4)
  1. MYCOPHENOLATE MOFETIL [Suspect]
     Active Substance: MYCOPHENOLATE MOFETIL
     Indication: Neuromyelitis optica spectrum disorder
  2. RITUXIMAB [Suspect]
     Active Substance: RITUXIMAB
     Indication: Neuromyelitis optica spectrum disorder
     Route: 065
  3. PREDNISONE [Concomitant]
     Active Substance: PREDNISONE
     Route: 065
  4. SOLIRIS [Concomitant]
     Active Substance: ECULIZUMAB
     Dosage: SINGLE USE, 300 MG/30ML

REACTIONS (5)
  - Atrial fibrillation [Unknown]
  - Drug hypersensitivity [Unknown]
  - Hypertension [Unknown]
  - Thyroid disorder [Unknown]
  - Off label use [Unknown]
